FAERS Safety Report 6956179-0 (Version None)
Quarter: 2010Q3

REPORT INFORMATION
  Report Type: 
  Country: None (occurrence: None)
  Receive Date: 20100830
  Receipt Date: 20100823
  Transmission Date: 20110219
  Serious: Yes (Hospitalization)
  Sender: FDA-Public Use
  Company Number: PHHO2010US10677

PATIENT
  Sex: Female

DRUGS (13)
  1. CYCLOSPORINE [Suspect]
     Indication: RENAL TRANSPLANT
     Dosage: 300MG/DAY
     Route: 048
     Dates: start: 20070120
  2. CELLCEPT [Suspect]
  3. PREDNISONE [Suspect]
     Dosage: UNK
  4. COLACE [Concomitant]
  5. NEURONTIN [Concomitant]
  6. HYDROCODONE [Concomitant]
  7. LISINOPRIL [Concomitant]
  8. METOPROLOL TARTRATE [Concomitant]
  9. M.V.I. [Concomitant]
  10. PAMELOR [Concomitant]
  11. OXYCONTIN [Concomitant]
  12. PRAVASTATIN [Concomitant]
  13. XANAX [Concomitant]

REACTIONS (15)
  - ABDOMINAL PAIN [None]
  - BETA HAEMOLYTIC STREPTOCOCCAL INFECTION [None]
  - CHEST DISCOMFORT [None]
  - CHEST PAIN [None]
  - DYSPNOEA [None]
  - ELECTROCARDIOGRAM T WAVE ABNORMAL [None]
  - FATIGUE [None]
  - HAEMATURIA [None]
  - LEFT VENTRICULAR HYPERTROPHY [None]
  - MITRAL VALVE INCOMPETENCE [None]
  - NAUSEA [None]
  - PERINEAL PAIN [None]
  - RIGHT VENTRICULAR SYSTOLIC PRESSURE INCREASED [None]
  - SINUS TACHYCARDIA [None]
  - URINARY TRACT INFECTION BACTERIAL [None]
